FAERS Safety Report 12759870 (Version 2)
Quarter: 2017Q2

REPORT INFORMATION
  Report Type: Spontaneous
  Country: JP (occurrence: JP)
  Receive Date: 20160919
  Receipt Date: 20170629
  Transmission Date: 20170830
  Serious: Yes (Death)
  Sender: FDA-Public Use
  Company Number: JP-JNJFOC-20160423811

PATIENT
  Age: 74 Year
  Sex: Male

DRUGS (3)
  1. NEORAL [Concomitant]
     Active Substance: CYCLOSPORINE
     Route: 048
     Dates: end: 20160605
  2. ITRIZOLE [Suspect]
     Active Substance: ITRACONAZOLE
     Indication: PROPHYLAXIS
     Route: 048
     Dates: start: 20160407, end: 20160508
  3. ANTITHYMOCYTE IMMUNOGLOBULIN [Suspect]
     Active Substance: THYMOCYTE IMMUNE GLOBULIN NOS
     Indication: PRODUCT USED FOR UNKNOWN INDICATION
     Route: 065
     Dates: end: 20160416

REACTIONS (2)
  - Fungal infection [Fatal]
  - Hepatic function abnormal [Recovering/Resolving]

NARRATIVE: CASE EVENT DATE: 20160418
